FAERS Safety Report 6854061-0 (Version None)
Quarter: 2010Q3

REPORT INFORMATION
  Report Type: 
  Country: None (occurrence: None)
  Receive Date: 20100717
  Receipt Date: 20071229
  Transmission Date: 20110219
  Serious: No
  Sender: FDA-Public Use
  Company Number: US-PFIZER INC-2008000311

PATIENT
  Sex: Male
  Weight: 90.9 kg

DRUGS (1)
  1. CHANTIX [Suspect]
     Indication: SMOKING CESSATION THERAPY
     Dates: start: 20070901

REACTIONS (4)
  - AGITATION [None]
  - DISTURBANCE IN ATTENTION [None]
  - IRRITABILITY [None]
  - VISION BLURRED [None]
